FAERS Safety Report 7141083-8 (Version None)
Quarter: 2010Q4

REPORT INFORMATION
  Report Type: 
  Country: None (occurrence: None)
  Receive Date: 20101207
  Receipt Date: 20101126
  Transmission Date: 20110411
  Serious: Yes (Life-Threatening, Hospitalization)
  Sender: FDA-Public Use
  Company Number: DE-JNJFOC-20101200822

PATIENT
  Age: 52 Year
  Sex: Male

DRUGS (17)
  1. TRAMAL [Suspect]
     Indication: BACK PAIN
     Route: 048
  2. BACLOFEN [Suspect]
     Indication: MUSCLE SPASTICITY
     Route: 048
  3. DIPIPERON [Suspect]
     Indication: CEREBROVASCULAR ACCIDENT
     Route: 048
  4. ANTELEPSIN [Suspect]
     Indication: EPILEPSY
     Route: 048
  5. LYRICA [Suspect]
     Indication: ANXIETY DISORDER
     Route: 048
  6. CARBAMAZEPINE [Suspect]
     Indication: EPILEPSY
     Route: 048
  7. TOREM [Concomitant]
  8. CAPTOPRIL AND HYDROCHLOROTHIAZIDE [Concomitant]
  9. BEZAFIBRATE [Concomitant]
  10. AGGRENOX [Concomitant]
  11. SPIRONO [Concomitant]
  12. TAMSULOSIN [Concomitant]
  13. IBUPROFEN LYSINATE [Concomitant]
  14. MOVICOL [Concomitant]
  15. METAMIZOLE [Concomitant]
  16. INSULIN [Concomitant]
  17. PANTOZOL [Concomitant]

REACTIONS (1)
  - RESPIRATORY FAILURE [None]
